FAERS Safety Report 8846406 (Version 1)
Quarter: 2012Q4

REPORT INFORMATION
  Report Type: 
  Country: US (occurrence: US)
  Receive Date: 20121018
  Receipt Date: 20121018
  Transmission Date: 20130627
  Serious: No
  Sender: FDA-Public Use
  Company Number: US-B.I. PHARMACEUTICALS,INC./RIDGEFIELD-2012-BP-25657BP

PATIENT
  Sex: Male

DRUGS (6)
  1. PRADAXA [Suspect]
     Indication: ATRIAL FIBRILLATION
     Dosage: 75 mg
     Route: 048
     Dates: start: 201202
  2. PRADAXA [Suspect]
     Dosage: 150 mg
     Route: 048
     Dates: start: 2010
  3. PRILOSEC [Concomitant]
     Route: 048
  4. SOTALOL [Concomitant]
     Route: 048
  5. LIPITOR [Concomitant]
     Route: 048
  6. DILTIAZEM [Concomitant]
     Route: 048

REACTIONS (4)
  - Dysphagia [Recovered/Resolved]
  - Gynaecomastia [Not Recovered/Not Resolved]
  - Breast tenderness [Not Recovered/Not Resolved]
  - Epistaxis [Recovered/Resolved]
